FAERS Safety Report 7757040-4 (Version None)
Quarter: 2011Q3

REPORT INFORMATION
  Report Type: 
  Country: None (occurrence: None)
  Receive Date: 20110825
  Receipt Date: 20110525
  Transmission Date: 20111222
  Serious: No
  Sender: FDA-Public Use
  Company Number: 330386

PATIENT
  Age: 68 Year
  Sex: Male

DRUGS (6)
  1. PLAVIX [Suspect]
     Indication: PRODUCT USED FOR UNKNOWN INDICATION
     Dosage: ORAL
     Route: 048
  2. LOPRESSOR [Suspect]
     Indication: PRODUCT USED FOR UNKNOWN INDICATION
     Dosage: 100 MG, BID, ORAL
     Route: 048
  3. FLOMAX /00889901/ (MORNIFLUMATE) [Concomitant]
  4. ALTACE [Concomitant]
  5. VICTOZA [Suspect]
     Indication: TYPE 2 DIABETES MELLITUS
     Dosage: 1.2 MG, QD, SUBCUTANEOUS
     Route: 058
     Dates: start: 20110101
  6. LANTUS [Concomitant]

REACTIONS (1)
  - NAUSEA [None]
